FAERS Safety Report 8880372 (Version 1)
Quarter: 2012Q4

REPORT INFORMATION
  Report Type: 
  Country: US (occurrence: US)
  Receive Date: 20121031
  Receipt Date: 20121031
  Transmission Date: 20130627
  Serious: Yes (Hospitalization, Other)
  Sender: FDA-Public Use
  Company Number: US-ASTRAZENECA-2012SE81151

PATIENT
  Age: 56 Year
  Sex: Female
  Weight: 78 kg

DRUGS (15)
  1. ATACAND [Suspect]
     Indication: HYPERTENSION
     Route: 048
     Dates: end: 2006
  2. ATACAND [Suspect]
     Indication: HYPERTENSION
     Route: 048
     Dates: start: 200608
  3. KETEK [Suspect]
     Indication: SINUSITIS
     Route: 048
     Dates: start: 20060301
  4. PREVACID [Concomitant]
  5. PHENOBARBITAL [Concomitant]
     Dates: end: 200604
  6. ASPIRIN [Concomitant]
     Dates: end: 200604
  7. MUCINEX [Concomitant]
     Dates: end: 200604
  8. CALCIUM [Concomitant]
     Dates: end: 200604
  9. VITAMIN D [Concomitant]
     Dates: end: 200604
  10. VITAMIN E [Concomitant]
  11. MONTELUKAST [Concomitant]
  12. PAXIL [Concomitant]
  13. MULTIVITAMINS [Concomitant]
  14. AMOXICILLIN SODIUM [Concomitant]
     Dates: start: 200603, end: 20060313
  15. CLAVULANATE POTASSIUM [Concomitant]
     Dates: start: 200603, end: 20060313

REACTIONS (6)
  - Autoimmune hepatitis [Unknown]
  - Hepatic failure [Unknown]
  - Complications of transplanted liver [Unknown]
  - Urinary tract infection [Unknown]
  - Vision blurred [Unknown]
  - Jaundice [Unknown]
